FAERS Safety Report 20812320 (Version 3)
Quarter: 2023Q2

REPORT INFORMATION
  Report Type: Spontaneous
  Country: US (occurrence: US)
  Receive Date: 20220511
  Receipt Date: 20230518
  Transmission Date: 20230722
  Serious: No
  Sender: FDA-Public Use
  Company Number: US-GLENMARK PHARMACEUTICALS-2022GMK071389

PATIENT

DRUGS (2)
  1. TOPIRAMATE [Suspect]
     Active Substance: TOPIRAMATE
     Indication: Migraine
     Dosage: 1 DOSAGE FORM, BID (1 DOSAGE FORM TWICE A DAY, ONE IN MORNING AND ONE EVENING)
     Route: 048
     Dates: end: 20220312
  2. METFORMIN [Concomitant]
     Active Substance: METFORMIN HYDROCHLORIDE
     Indication: Diabetes mellitus
     Dosage: UNK, BID (2 TIMES A DAY AFTER EACH MEAL STARTED 3 OR 4 YEARS AGO)
     Route: 048

REACTIONS (2)
  - Alopecia [Not Recovered/Not Resolved]
  - Product colour issue [Unknown]
